FAERS Safety Report 8043410-6 (Version None)
Quarter: 2012Q1

REPORT INFORMATION
  Report Type: 
  Country: None (occurrence: None)
  Receive Date: 20120112
  Receipt Date: 20111229
  Transmission Date: 20120608
  Serious: Yes (Hospitalization)
  Sender: FDA-Public Use
  Company Number: PHHO2011US07905

PATIENT
  Sex: Male
  Weight: 32.7 kg

DRUGS (10)
  1. PREDNISONE TAB [Suspect]
     Dosage: 5 MG, QD
     Route: 048
     Dates: start: 20110215, end: 20110405
  2. PREDNISONE TAB [Suspect]
     Dosage: 4 MG, QD
     Route: 048
     Dates: start: 20110406, end: 20110412
  3. PREDNISONE TAB [Suspect]
     Dosage: 3 MG, QD
     Route: 048
     Dates: start: 20110413, end: 20110419
  4. PREDNISONE TAB [Suspect]
     Dosage: 2 MG, QD
     Route: 048
     Dates: start: 20110420, end: 20110426
  5. ILARIS [Suspect]
     Indication: JUVENILE ARTHRITIS
     Dosage: 41 MG/KG, UNK
     Dates: start: 20100119, end: 20110405
  6. INDOCIN [Concomitant]
     Indication: JUVENILE ARTHRITIS
     Dosage: 25 MG, TID
     Route: 048
  7. PREDNISONE TAB [Suspect]
     Dosage: 10 MG, QD
     Route: 048
  8. METHOTREXATE [Concomitant]
     Indication: JUVENILE ARTHRITIS
     Dosage: 20 MG, QD
     Route: 058
  9. PREDNISONE TAB [Suspect]
     Indication: JUVENILE ARTHRITIS
     Dosage: 1 MG, QD
     Route: 048
  10. PREDNISONE TAB [Suspect]
     Dosage: 1 MG, QD
     Route: 048
     Dates: start: 20110427, end: 20110503

REACTIONS (1)
  - JUVENILE ARTHRITIS [None]
